FAERS Safety Report 13924973 (Version 1)
Quarter: 2017Q3

REPORT INFORMATION
  Report Type: Spontaneous
  Country: US (occurrence: US)
  Receive Date: 20170831
  Receipt Date: 20170831
  Transmission Date: 20171127
  Serious: No
  Sender: FDA-Public Use
  Company Number: US-HORIZON-PEN-0384-2017

PATIENT
  Age: 44 Year
  Sex: Male

DRUGS (1)
  1. PENNSAID [Suspect]
     Active Substance: DICLOFENAC SODIUM
     Indication: MUSCULOSKELETAL PAIN
     Dosage: 2 PUMPS INTERMITTENTLY AS NEEDED
     Route: 061

REACTIONS (4)
  - Photosensitivity reaction [Unknown]
  - Off label use [Unknown]
  - Rash pruritic [Unknown]
  - Rash vesicular [Unknown]
